FAERS Safety Report 5677397-8 (Version None)
Quarter: 2008Q1

REPORT INFORMATION
  Report Type: 
  Country: None (occurrence: None)
  Receive Date: 20080318
  Receipt Date: 20080303
  Transmission Date: 20080703
  Serious: Yes (Other)
  Sender: FDA-Public Use
  Company Number: GXKR2008ES02285

PATIENT
  Age: 30 Year
  Sex: Female

DRUGS (2)
  1. IBUPROFENO               (IBUPROFEN) [Suspect]
     Indication: ACUTE SINUSITIS
     Dosage: 1800 MG/DAY, ORAL
     Route: 048
     Dates: start: 20080131, end: 20080207
  2. AMOXICILLIN+CLAVULANATE (NGX) (AMOXICILLIN, CLAVULANATE) UNKNOWN [Suspect]
     Indication: ACUTE SINUSITIS
     Dosage: 1500 MG/DAY,ORAL
     Route: 048
     Dates: start: 20080131, end: 20080207

REACTIONS (3)
  - SKIN FISSURES [None]
  - SKIN HAEMORRHAGE [None]
  - VULVAL DISORDER [None]
